FAERS Safety Report 4718199-6 (Version None)
Quarter: 2005Q3

REPORT INFORMATION
  Report Type: 
  Country: None (occurrence: None)
  Receive Date: 20050718
  Receipt Date: 20050718
  Transmission Date: 20060218
  Serious: No
  Sender: FDA-Public Use
  Company Number: None

PATIENT
  Sex: Male
  Weight: 71.6683 kg

DRUGS (4)
  1. ZOMETA [Suspect]
     Indication: CARCINOID TUMOUR
     Dosage: 4 MG Q MONTH
     Dates: start: 20020227
  2. ZOMETA [Suspect]
     Indication: METASTASES TO BONE
     Dosage: 4 MG Q MONTH
     Dates: start: 20020227
  3. SANDOSTATIN LAR [Concomitant]
  4. ARANESP [Concomitant]

REACTIONS (1)
  - OSTEONECROSIS [None]
